FAERS Safety Report 7082433-0 (Version None)
Quarter: 2010Q4

REPORT INFORMATION
  Report Type: 
  Country: None (occurrence: None)
  Receive Date: 20101104
  Receipt Date: 20101026
  Transmission Date: 20110411
  Serious: No
  Sender: FDA-Public Use
  Company Number: 2009BI035633

PATIENT
  Age: 37 Year
  Sex: Female

DRUGS (2)
  1. TYSABRI [Suspect]
     Indication: MULTIPLE SCLEROSIS
     Route: 042
     Dates: start: 20070816, end: 20090101
  2. TYSABRI [Suspect]
     Route: 042
     Dates: start: 20091001

REACTIONS (3)
  - DRUG INEFFECTIVE [None]
  - H1N1 INFLUENZA [None]
  - NERVE INJURY [None]
